FAERS Safety Report 9831417 (Version 3)
Quarter: 2014Q2

REPORT INFORMATION
  Report Type: Report from Study
  Country: US (occurrence: US)
  Receive Date: 20140121
  Receipt Date: 20140509
  Transmission Date: 20141212
  Serious: Yes (Hospitalization)
  Sender: FDA-Public Use
  Company Number: US-BRISTOL-MYERS SQUIBB COMPANY-20053427

PATIENT
  Age: 49 Year
  Sex: Male

DRUGS (5)
  1. ARIPIPRAZOLE [Suspect]
     Indication: BIPOLAR I DISORDER
     Dosage: 02-JAN-2014 ONGOING?15 MG
     Route: 048
     Dates: start: 20131217
  2. LITHIUM [Concomitant]
     Dosage: ONGOING
     Dates: start: 2011
  3. NEURONTIN [Concomitant]
     Dates: start: 20140104
  4. DESYREL [Concomitant]
  5. ESKALITH [Concomitant]

REACTIONS (1)
  - Mania [Recovered/Resolved]
